FAERS Safety Report 13302315 (Version 3)
Quarter: 2017Q2

REPORT INFORMATION
  Report Type: Spontaneous
  Country: US (occurrence: US)
  Receive Date: 20170307
  Receipt Date: 20170602
  Transmission Date: 20170830
  Serious: No
  Sender: FDA-Public Use
  Company Number: US-009507513-1703USA002226

PATIENT
  Age: 20 Year
  Sex: Female
  Weight: 82.54 kg

DRUGS (2)
  1. NEXPLANON [Suspect]
     Active Substance: ETONOGESTREL
     Dosage: 68 MG, EVERY 3 YEARS
     Route: 059
     Dates: start: 20170302, end: 20170302
  2. NEXPLANON [Suspect]
     Active Substance: ETONOGESTREL
     Dosage: 68 MG, EVERY 3 YEARS
     Route: 059
     Dates: start: 20170302

REACTIONS (5)
  - Complication of device insertion [Recovered/Resolved]
  - Product quality issue [Unknown]
  - Device deployment issue [Unknown]
  - No adverse event [Unknown]
  - Implant site scar [Unknown]

NARRATIVE: CASE EVENT DATE: 20170302
